FAERS Safety Report 19493133 (Version 1)
Quarter: 2021Q3

REPORT INFORMATION
  Report Type: Spontaneous
  Country: BG (occurrence: BG)
  Receive Date: 20210705
  Receipt Date: 20210705
  Transmission Date: 20211014
  Serious: Yes (Hospitalization)
  Sender: FDA-Public Use
  Company Number: BG-AMGEN-BGRNI2021099682

PATIENT

DRUGS (8)
  1. ZARZIO [Concomitant]
     Active Substance: FILGRASTIM
     Indication: LEUKOPENIA
     Dosage: ONGOING = NOT CHECKED
     Dates: start: 20200709, end: 20200709
  2. ZOLEDRONIC ACID [Suspect]
     Active Substance: ZOLEDRONIC ACID
     Indication: BREAST CANCER
     Dosage: 4 MG, EVERY 4 WEEK
     Route: 042
     Dates: start: 20191114
  3. TRAMADOL. [Concomitant]
     Active Substance: TRAMADOL
     Dosage: UNK (ONGOING = CHECKED)
     Dates: start: 20200824
  4. DOCETAXEL. [Suspect]
     Active Substance: DOCETAXEL
     Indication: BREAST CANCER
     Dosage: 75 MG, EVERY 3 WEEKS
     Route: 042
     Dates: start: 20191031
  5. ANALGIN [METAMIZOLE SODIUM MONOHYDRATE] [Concomitant]
     Active Substance: DIPYRONE
     Dosage: ONGOING = NOT CHECKED
     Dates: start: 20191015, end: 20200824
  6. BINOCRIT [Concomitant]
     Active Substance: ERYTHROPOIETIN
     Indication: ANAEMIA
     Dosage: ONGOING = NOT CHECKED
     Dates: start: 20200710, end: 20200710
  7. TRASTUZUMAB. [Suspect]
     Active Substance: TRASTUZUMAB
     Indication: BREAST CANCER
     Dosage: 450 MG; MOST RECENT DOSE PRIOR TO THE EVENT: 27/NOV/2019
     Route: 042
     Dates: start: 20191031
  8. ENALAPRIL [Concomitant]
     Active Substance: ENALAPRIL
     Dosage: UNK (ONGOING = CHECKED)
     Dates: start: 20091215

REACTIONS (2)
  - Anaemia [Recovered/Resolved with Sequelae]
  - Underdose [Unknown]

NARRATIVE: CASE EVENT DATE: 20200807
